FAERS Safety Report 4632273-4 (Version None)
Quarter: 2005Q2

REPORT INFORMATION
  Report Type: 
  Country: None (occurrence: None)
  Receive Date: 20050411
  Receipt Date: 20050328
  Transmission Date: 20051028
  Serious: Yes (Hospitalization)
  Sender: FDA-Public Use
  Company Number: US-ROCHE-399956

PATIENT
  Age: 62 Year
  Sex: Male

DRUGS (5)
  1. PEG-INTERFERON ALFA 2A (RO 25-8310) [Suspect]
     Route: 058
     Dates: start: 20041202, end: 20050105
  2. RIBAVIRIN [Suspect]
     Route: 048
     Dates: start: 20041202, end: 20050105
  3. FOLIC ACID [Concomitant]
     Indication: VITAMIN SUPPLEMENTATION
     Route: 048
     Dates: start: 20010615
  4. MAXIDEX [Concomitant]
     Indication: HYPERTENSION
     Route: 048
     Dates: start: 20010615, end: 20050104
  5. ROLAIDS [Concomitant]
     Route: 048
     Dates: start: 20010615

REACTIONS (2)
  - DEHYDRATION [None]
  - SYNCOPE [None]
